FAERS Safety Report 19222597 (Version 1)
Quarter: 2021Q2

REPORT INFORMATION
  Report Type: Spontaneous
  Country: US (occurrence: US)
  Receive Date: 20210506
  Receipt Date: 20210506
  Transmission Date: 20210717
  Serious: No
  Sender: FDA-Public Use
  Company Number: US-AMNEAL PHARMACEUTICALS-2021-AMRX-00429

PATIENT
  Age: 55 Year
  Sex: Female

DRUGS (4)
  1. BUPRENORPHINE TRANSDERMAL SYSTEM [Suspect]
     Active Substance: BUPRENORPHINE
     Dosage: 5MCG/HOUR
     Route: 062
     Dates: start: 2021, end: 2021
  2. BUPRENORPHINE TRANSDERMAL SYSTEM [Suspect]
     Active Substance: BUPRENORPHINE
     Indication: PAIN
     Dosage: 7.5MCG/HOUR
     Route: 062
     Dates: end: 202101
  3. MOBIC [Concomitant]
     Active Substance: MELOXICAM
     Indication: PRODUCT USED FOR UNKNOWN INDICATION
     Dosage: UNK
     Route: 065
  4. ESTRADIOL. [Concomitant]
     Active Substance: ESTRADIOL
     Indication: PRODUCT USED FOR UNKNOWN INDICATION
     Dosage: UNK
     Route: 065

REACTIONS (2)
  - Application site rash [Unknown]
  - Product adhesion issue [Unknown]

NARRATIVE: CASE EVENT DATE: 202101
